FAERS Safety Report 4593954-4 (Version None)
Quarter: 2005Q1

REPORT INFORMATION
  Report Type: 
  Country: None (occurrence: None)
  Receive Date: 20050301
  Receipt Date: 20041210
  Transmission Date: 20050727
  Serious: Yes (Hospitalization)
  Sender: FDA-Public Use
  Company Number: SE-MERCK-0412SWE00020

PATIENT
  Age: 69 Year
  Sex: Female

DRUGS (4)
  1. ZOCOR [Suspect]
     Indication: HYPERLIPIDAEMIA
     Route: 048
     Dates: start: 20010101, end: 20040801
  2. LANSOPRAZOLE [Suspect]
     Route: 048
     Dates: start: 20040901, end: 20041001
  3. CALCIUM CARBONATE AND CHOLECALCIFEROL [Concomitant]
     Route: 048
  4. SPIRONOLACTONE [Concomitant]
     Route: 048

REACTIONS (9)
  - ABDOMINAL PAIN UPPER [None]
  - ADRENAL ADENOMA [None]
  - ASCITES [None]
  - AUTOIMMUNE HEPATITIS [None]
  - HEPATIC CIRRHOSIS [None]
  - HEPATIC FAILURE [None]
  - LIVER DISORDER [None]
  - PETECHIAE [None]
  - TOXIC EPIDERMAL NECROLYSIS [None]
